FAERS Safety Report 6538053-7 (Version None)
Quarter: 2010Q1

REPORT INFORMATION
  Report Type: 
  Country: None (occurrence: None)
  Receive Date: 20100112
  Receipt Date: 20100112
  Transmission Date: 20100710
  Serious: Yes (Other)
  Sender: FDA-Public Use
  Company Number: None

PATIENT
  Age: 67 Year
  Sex: Female
  Weight: 81.6475 kg

DRUGS (1)
  1. BONIVA [Suspect]
     Indication: OSTEOPENIA
     Dates: start: 20070718, end: 20090818

REACTIONS (3)
  - DRUG INEFFECTIVE [None]
  - FEMUR FRACTURE [None]
  - GAIT DISTURBANCE [None]
